FAERS Safety Report 4411250-2 (Version None)
Quarter: 2004Q3

REPORT INFORMATION
  Report Type: 
  Country: None (occurrence: None)
  Receive Date: 20040727
  Receipt Date: 20040715
  Transmission Date: 20050211
  Serious: Yes (Hospitalization)
  Sender: FDA-Public Use
  Company Number: JP-JNJFOC-20040706260

PATIENT
  Age: 29 Year
  Sex: Female

DRUGS (2)
  1. PEPCID AC [Suspect]
     Indication: NAUSEA
     Dosage: 10 MG, 1 IN 1 DAY, ORAL
     Route: 048
     Dates: start: 20040601, end: 20040601
  2. UNSPECIFIED PRESCRIPTION COLD PRODUCT (ALL OTHER THERAPEUTIC PRODUCTS) [Concomitant]

REACTIONS (1)
  - HEPATITIS ACUTE [None]
